FAERS Safety Report 13474056 (Version 1)
Quarter: 2017Q2

REPORT INFORMATION
  Report Type: Spontaneous
  Country: US (occurrence: US)
  Receive Date: 20170424
  Receipt Date: 20170424
  Transmission Date: 20170830
  Serious: Yes (Other)
  Sender: FDA-Public Use
  Company Number: US-SA-2017SA048919

PATIENT
  Age: 85 Year
  Sex: Female

DRUGS (3)
  1. LOVENOX [Suspect]
     Active Substance: ENOXAPARIN SODIUM
     Dosage: USING THE 60 MG LOVENOX SYRINGE,1 MG/KG ONCE DAILY DOSE
     Route: 065
     Dates: start: 20170314, end: 20170320
  2. COUMADIN [Concomitant]
     Active Substance: WARFARIN SODIUM
     Dosage: STRENGTH 5 MG
     Route: 065
  3. LOVENOX [Suspect]
     Active Substance: ENOXAPARIN SODIUM
     Dosage: USING THE 60 MG LOVENOX SYRINGE,1 MG/KG ONCE DAILY DOSE
     Route: 065
     Dates: start: 20170314, end: 20170320

REACTIONS (1)
  - Cerebral haemorrhage [Not Recovered/Not Resolved]

NARRATIVE: CASE EVENT DATE: 20170320
